FAERS Safety Report 7781788-9 (Version None)
Quarter: 2011Q3

REPORT INFORMATION
  Report Type: 
  Country: None (occurrence: None)
  Receive Date: 20110927
  Receipt Date: 20110922
  Transmission Date: 20111222
  Serious: Yes (Other)
  Sender: FDA-Public Use
  Company Number: FR-GLAXOSMITHKLINE-B0743863A

PATIENT
  Sex: Female

DRUGS (3)
  1. FLUTICASONE PROPIONATE [Suspect]
     Indication: ASTHMA
     Dosage: 200MCG PER DAY
     Route: 055
     Dates: start: 20080101
  2. VENTOLIN [Concomitant]
     Indication: ASTHMA
     Route: 055
  3. SINGULAIR [Concomitant]
     Indication: ASTHMA
     Route: 048

REACTIONS (3)
  - DEVICE FAILURE [None]
  - ASTHMATIC CRISIS [None]
  - PRODUCT QUALITY ISSUE [None]
